FAERS Safety Report 15838171 (Version 1)
Quarter: 2019Q1

REPORT INFORMATION
  Report Type: Spontaneous
  Country: SE (occurrence: SE)
  Receive Date: 20190117
  Receipt Date: 20190117
  Transmission Date: 20190417
  Serious: Yes (Hospitalization, Other)
  Sender: FDA-Public Use
  Company Number: SE-PFIZER INC-2019020869

PATIENT
  Age: 22 Year
  Sex: Female

DRUGS (4)
  1. SERTRALINE HCL [Suspect]
     Active Substance: SERTRALINE HYDROCHLORIDE
     Dosage: 2 G, UNK
     Dates: start: 20160511
  2. NAPROXEN. [Suspect]
     Active Substance: NAPROXEN
     Dosage: UNKNOWN AMOUNT
     Dates: start: 20160511
  3. ATORVASTATIN CALCIUM. [Concomitant]
     Active Substance: ATORVASTATIN CALCIUM
  4. PANODIL [Suspect]
     Active Substance: ACETAMINOPHEN
     Dosage: 10 G, UNK
     Dates: start: 20160511

REACTIONS (2)
  - Suicidal ideation [Unknown]
  - Toxicity to various agents [Unknown]

NARRATIVE: CASE EVENT DATE: 20160511
